FAERS Safety Report 4597096-3 (Version None)
Quarter: 2005Q1

REPORT INFORMATION
  Report Type: 
  Country: None (occurrence: None)
  Receive Date: 20050301
  Receipt Date: 20050216
  Transmission Date: 20050727
  Serious: Yes (Hospitalization)
  Sender: FDA-Public Use
  Company Number: 2005033080

PATIENT
  Age: 69 Year
  Sex: Male

DRUGS (3)
  1. CABERGOLINE [Suspect]
     Indication: PARKINSON'S DISEASE
     Dosage: 3 MG, ORAL
     Route: 048
     Dates: start: 20040604
  2. SELEGELINE HYDROCHLORIDE [Concomitant]
  3. LEVODOPA (LEVODOPA) [Concomitant]

REACTIONS (1)
  - DELUSION [None]
